FAERS Safety Report 14759147 (Version 11)
Quarter: 2018Q3

REPORT INFORMATION
  Report Type: Report from Study
  Country: CA (occurrence: CA)
  Receive Date: 20180413
  Receipt Date: 20180705
  Transmission Date: 20181010
  Serious: Yes (Other)
  Sender: FDA-Public Use
  Company Number: PHHY2016CA127862

PATIENT
  Age: 64 Year
  Sex: Female

DRUGS (15)
  1. MORPHINE [Suspect]
     Active Substance: MORPHINE
     Dosage: 15 MG, Q12H
     Route: 048
  2. VIACORAM [Concomitant]
     Active Substance: AMLODIPINE BESYLATE\PERINDOPRIL ARGININE
     Indication: PRODUCT USED FOR UNKNOWN INDICATION
     Dosage: UNK
     Route: 065
  3. VIACORAM [Concomitant]
     Active Substance: AMLODIPINE BESYLATE\PERINDOPRIL ARGININE
     Dosage: 10 MG, UNK
     Route: 065
  4. GLICLAZIDE [Concomitant]
     Active Substance: GLICLAZIDE
     Indication: BLOOD GLUCOSE INCREASED
     Dosage: 120 MG, QD (MORNING)
     Route: 065
  5. CODEINE PHOSPHATE [Suspect]
     Active Substance: CODEINE PHOSPHATE
     Indication: PLEURISY
     Dosage: 25 MG/ML, QID OR AS NEEDED
     Route: 065
     Dates: start: 20171204
  6. JANUMET [Concomitant]
     Active Substance: METFORMIN HYDROCHLORIDE\SITAGLIPTIN PHOSPHATE
     Indication: BLOOD GLUCOSE INCREASED
     Dosage: 50/1000MG BID
     Route: 065
  7. AMOXICILLIN. [Concomitant]
     Active Substance: AMOXICILLIN
     Indication: PLEURISY
     Dosage: 500 MG, TID
     Route: 048
     Dates: start: 20171204
  8. JANUVIA [Concomitant]
     Active Substance: SITAGLIPTIN PHOSPHATE
     Indication: DIABETES MELLITUS
     Dosage: UNK UNK, BID
     Route: 065
  9. SANDOSTATIN LAR DEPOT [Suspect]
     Active Substance: OCTREOTIDE ACETATE
     Dosage: 30 MG, Q3W
     Route: 030
  10. TRESIBA [Concomitant]
     Active Substance: INSULIN DEGLUDEC
     Indication: BLOOD GLUCOSE INCREASED
     Dosage: UNK
     Route: 065
     Dates: start: 20171108
  11. NOVORAPID [Concomitant]
     Active Substance: INSULIN ASPART
     Indication: DIABETES MELLITUS
     Route: 065
  12. SANDOSTATIN LAR DEPOT [Suspect]
     Active Substance: OCTREOTIDE ACETATE
     Dosage: 40 MG, Q3W
     Route: 030
  13. GILENYA [Suspect]
     Active Substance: FINGOLIMOD HYDROCHLORIDE
     Indication: PRODUCT USED FOR UNKNOWN INDICATION
     Dosage: UNK
     Route: 065
  14. SANDOSTATIN LAR DEPOT [Suspect]
     Active Substance: OCTREOTIDE ACETATE
     Indication: CARCINOID TUMOUR
     Dosage: 30 MG, Q3W, EVERY 3 WEEKS
     Route: 030
     Dates: start: 20160721
  15. MORPHINE [Suspect]
     Active Substance: MORPHINE
     Indication: ABDOMINAL PAIN
     Dosage: 5 MG, PRN
     Route: 048
     Dates: start: 20180315

REACTIONS (41)
  - Gait disturbance [Unknown]
  - Hepatic pain [Unknown]
  - Abdominal distension [Unknown]
  - Diarrhoea [Recovered/Resolved]
  - Carcinoid crisis [Unknown]
  - Erysipelas [Not Recovered/Not Resolved]
  - Metastases to bone [Unknown]
  - Feeling cold [Unknown]
  - Fear-related avoidance of activities [Unknown]
  - Nausea [Unknown]
  - Diarrhoea [Recovered/Resolved]
  - Metastasis [Unknown]
  - Acne [Unknown]
  - Musculoskeletal chest pain [Unknown]
  - Blood glucose increased [Unknown]
  - Abdominal pain [Unknown]
  - Fatigue [Unknown]
  - Malignant neoplasm progression [Unknown]
  - Purulent discharge [Unknown]
  - Heart rate increased [Unknown]
  - Papule [Unknown]
  - Pain [Unknown]
  - Abdominal pain upper [Unknown]
  - Blood pressure increased [Recovering/Resolving]
  - Inappropriate schedule of drug administration [Unknown]
  - Chills [Unknown]
  - Blood pressure systolic increased [Unknown]
  - Stress [Unknown]
  - Back pain [Unknown]
  - Herpes zoster [Unknown]
  - Palpitations [Unknown]
  - Pleurisy [Recovered/Resolved]
  - Pulse abnormal [Unknown]
  - Alopecia [Unknown]
  - Injection site pain [Recovered/Resolved]
  - Diverticulitis [Unknown]
  - Frequent bowel movements [Unknown]
  - Myalgia [Unknown]
  - Tinnitus [Unknown]
  - Flatulence [Unknown]
  - Constipation [Unknown]

NARRATIVE: CASE EVENT DATE: 2016
